FAERS Safety Report 5699781-9 (Version None)
Quarter: 2008Q2

REPORT INFORMATION
  Report Type: 
  Country: None (occurrence: None)
  Receive Date: 20080410
  Receipt Date: 20080410
  Transmission Date: 20081010
  Serious: No
  Sender: FDA-Public Use
  Company Number: None

PATIENT
  Age: 36 Year
  Sex: Male

DRUGS (1)
  1. HEPARIN [Suspect]
     Indication: DIALYSIS
     Dosage: 5,000 UNITS ONCE IV BOLUS
     Route: 040
     Dates: start: 20080211, end: 20080218

REACTIONS (7)
  - DYSPNOEA [None]
  - FEELING OF BODY TEMPERATURE CHANGE [None]
  - HYPOAESTHESIA [None]
  - NONSPECIFIC REACTION [None]
  - PARAESTHESIA [None]
  - PARAESTHESIA ORAL [None]
  - THROAT IRRITATION [None]
